FAERS Safety Report 5635975-6 (Version None)
Quarter: 2008Q1

REPORT INFORMATION
  Report Type: 
  Country: None (occurrence: None)
  Receive Date: 20080224
  Receipt Date: 20080220
  Transmission Date: 20080703
  Serious: Yes (Other)
  Sender: FDA-Public Use
  Company Number: PHNU2008DE01045

PATIENT
  Age: 30 Year
  Sex: Female

DRUGS (1)
  1. LEPONEX [Suspect]
     Dosage: 550 MG/DAY
     Route: 048

REACTIONS (6)
  - DYSARTHRIA [None]
  - DYSKINESIA [None]
  - ENURESIS [None]
  - POISONING [None]
  - SALIVARY HYPERSECRETION [None]
  - SEDATION [None]
